FAERS Safety Report 19188459 (Version 1)
Quarter: 2021Q2

REPORT INFORMATION
  Report Type: Spontaneous
  Country: US (occurrence: US)
  Receive Date: 20210427
  Receipt Date: 20210427
  Transmission Date: 20210717
  Serious: Yes (Other)
  Sender: FDA-Public Use
  Company Number: US-ASTRAZENECA-2021A332604

PATIENT
  Age: 66 Year
  Sex: Female
  Weight: 66.2 kg

DRUGS (34)
  1. OXYBUTYNIN. [Concomitant]
     Active Substance: OXYBUTYNIN CHLORIDE
     Indication: URINARY INCONTINENCE
  2. LEVOTHYROXINE SODIUM. [Concomitant]
     Active Substance: LEVOTHYROXINE SODIUM
     Dosage: 50.0UG UNKNOWN
  3. DAILY VITE [Concomitant]
     Active Substance: VITAMINS
  4. AMOXICILLIN. [Concomitant]
     Active Substance: AMOXICILLIN
     Route: 048
     Dates: start: 20201231
  5. BACLOFEN. [Suspect]
     Active Substance: BACLOFEN
     Indication: PRODUCT USED FOR UNKNOWN INDICATION
     Dosage: 10.0MG UNKNOWN
     Route: 065
  6. TYSABRI [Concomitant]
     Active Substance: NATALIZUMAB
  7. AMPYRA [Suspect]
     Active Substance: DALFAMPRIDINE
     Indication: MULTIPLE SCLEROSIS
     Route: 065
     Dates: start: 20170824, end: 20210331
  8. CALCIUM [Concomitant]
     Active Substance: CALCIUM
     Dosage: 600.0MG UNKNOWN
  9. TERIFLUNOMIDE. [Suspect]
     Active Substance: TERIFLUNOMIDE
     Indication: MULTIPLE SCLEROSIS
     Route: 048
     Dates: start: 20190426, end: 20201001
  10. METHOCARBAMOL. [Suspect]
     Active Substance: METHOCARBAMOL
     Indication: PRODUCT USED FOR UNKNOWN INDICATION
     Route: 048
  11. LISINOPRIL. [Concomitant]
     Active Substance: LISINOPRIL
     Route: 048
  12. MULTIVITAMINS [Concomitant]
     Active Substance: VITAMINS
     Route: 048
  13. PAROXETINE. [Concomitant]
     Active Substance: PAROXETINE
     Route: 048
     Dates: start: 20200131
  14. FOSAMAX [Concomitant]
     Active Substance: ALENDRONATE SODIUM
     Dosage: 70.0MG UNKNOWN
  15. AMANTADINE. [Concomitant]
     Active Substance: AMANTADINE HYDROCHLORIDE
     Dates: start: 20190912
  16. ACETAMINOPHEN. [Concomitant]
     Active Substance: ACETAMINOPHEN
     Dosage: 325.0MG UNKNOWN
  17. MYRBETRIQ [Concomitant]
     Active Substance: MIRABEGRON
     Indication: INCONTINENCE
  18. VITAMIN E [Concomitant]
     Active Substance: .ALPHA.-TOCOPHEROL
  19. AMLODIPINE [Concomitant]
     Active Substance: AMLODIPINE BESYLATE
     Route: 048
  20. CRESTOR [Suspect]
     Active Substance: ROSUVASTATIN CALCIUM
     Indication: PRODUCT USED FOR UNKNOWN INDICATION
     Dosage: UNK, UNKNOWN
     Route: 048
  21. TIZANIDINE. [Suspect]
     Active Substance: TIZANIDINE
     Indication: PAIN
     Dosage: UNK, UNKNOWN
     Route: 065
  22. PAXEL [Concomitant]
     Active Substance: PACLITAXEL
     Dosage: 10.0MG UNKNOWN
  23. CALCIUM 600 PLUS [Concomitant]
     Dosage: 0.5 TABLET DAILY
     Route: 048
     Dates: start: 20200612
  24. TERIFLUNOMIDE. [Suspect]
     Active Substance: TERIFLUNOMIDE
     Indication: MULTIPLE SCLEROSIS
     Route: 048
     Dates: start: 2019
  25. ALENDRONATE [Concomitant]
     Active Substance: ALENDRONATE SODIUM
     Route: 048
  26. LEVOTHYROXINE SODIUM. [Concomitant]
     Active Substance: LEVOTHYROXINE SODIUM
     Dosage: 25.0UG UNKNOWN
     Route: 048
  27. COLECALCIFEROL [Concomitant]
     Active Substance: CHOLECALCIFEROL
     Dosage: 5000 INTERNATIONAL UNIT DAILY
     Route: 048
     Dates: start: 20180815
  28. PROVIGIL [Concomitant]
     Active Substance: MODAFINIL
  29. TYLENOL [Concomitant]
     Active Substance: ACETAMINOPHEN
  30. ALEVE [Concomitant]
     Active Substance: NAPROXEN SODIUM
  31. NUVIGIL [Concomitant]
     Active Substance: ARMODAFINIL
  32. LYRICA [Concomitant]
     Active Substance: PREGABALIN
     Route: 048
  33. TERIFLUNOMIDE. [Suspect]
     Active Substance: TERIFLUNOMIDE
     Indication: MULTIPLE SCLEROSIS
     Route: 048
     Dates: start: 20190131, end: 2019
  34. MAGNESIUM [Concomitant]
     Active Substance: MAGNESIUM
     Dosage: 100.0MG UNKNOWN

REACTIONS (50)
  - Ankle fracture [Unknown]
  - Somnolence [Unknown]
  - Amnesia [Unknown]
  - Dizziness [Unknown]
  - Extra dose administered [Unknown]
  - Muscle spasms [Unknown]
  - Muscle strain [Unknown]
  - Urinary incontinence [Unknown]
  - Pain in extremity [Unknown]
  - Arthralgia [Unknown]
  - Balance disorder [Unknown]
  - Nerve compression [Unknown]
  - Headache [Unknown]
  - Peroneal nerve palsy [Unknown]
  - Disorientation [Unknown]
  - Hypertension [Unknown]
  - Hyperlipidaemia [Unknown]
  - Depression [Recovering/Resolving]
  - Anxiety [Recovering/Resolving]
  - Spinal compression fracture [Unknown]
  - Osteonecrosis [Unknown]
  - Spinal osteoarthritis [Unknown]
  - Hyperaesthesia [Unknown]
  - Myalgia [Unknown]
  - Spinal epidural haematoma [Unknown]
  - White matter lesion [Unknown]
  - Visual evoked potentials abnormal [Unknown]
  - CSF immunoglobulin increased [Unknown]
  - CSF oligoclonal band present [Unknown]
  - Muscular weakness [Recovering/Resolving]
  - Hepatic enzyme increased [Unknown]
  - Fall [Unknown]
  - Gait disturbance [Recovering/Resolving]
  - Urinary tract infection [Unknown]
  - Product use issue [Unknown]
  - Ill-defined disorder [Unknown]
  - Peripheral swelling [Unknown]
  - Bladder disorder [Unknown]
  - Malaise [Unknown]
  - Fatigue [Not Recovered/Not Resolved]
  - Incorrect dose administered [Unknown]
  - Intervertebral disc protrusion [Unknown]
  - Spinal cord injury thoracic [Unknown]
  - Hypothyroidism [Unknown]
  - Pollakiuria [Unknown]
  - Irritable bowel syndrome [Unknown]
  - Asthenia [Unknown]
  - Back pain [Unknown]
  - Constipation [Unknown]
  - Drug ineffective [Unknown]

NARRATIVE: CASE EVENT DATE: 2008
